FAERS Safety Report 10794131 (Version 1)
Quarter: 2015Q1

REPORT INFORMATION
  Report Type: Spontaneous
  Country: SE (occurrence: SE)
  Receive Date: 20150213
  Receipt Date: 20150213
  Transmission Date: 20150721
  Serious: Yes (Other)
  Sender: FDA-Public Use
  Company Number: SE-MERCK-1502SWE004317

PATIENT
  Age: 60 Year
  Sex: Male

DRUGS (5)
  1. TROMBYL [Concomitant]
     Active Substance: ASPIRIN
  2. JANUVIA [Suspect]
     Active Substance: SITAGLIPTIN PHOSPHATE
     Indication: TYPE 2 DIABETES MELLITUS
     Route: 048
     Dates: start: 20141209, end: 20150101
  3. ENALAPRIL MALEATE (+) HYDROCHLOROTHIAZIDE [Concomitant]
     Active Substance: ENALAPRIL MALEATE\HYDROCHLOROTHIAZIDE
  4. CRESTOR [Concomitant]
     Active Substance: ROSUVASTATIN CALCIUM
  5. DICLOFENAC SODIUM. [Concomitant]
     Active Substance: DICLOFENAC SODIUM

REACTIONS (8)
  - Dry eye [Recovered/Resolved]
  - Constipation [Recovered/Resolved]
  - Dry mouth [Recovered/Resolved]
  - Oliguria [Recovered/Resolved]
  - Dizziness [Recovered/Resolved]
  - Swelling [Recovered/Resolved]
  - Headache [Recovered/Resolved]
  - Thirst [Recovered/Resolved]

NARRATIVE: CASE EVENT DATE: 201412
